FAERS Safety Report 13917137 (Version 1)
Quarter: 2017Q3

REPORT INFORMATION
  Report Type: Spontaneous
  Country: US (occurrence: US)
  Receive Date: 20170829
  Receipt Date: 20170829
  Transmission Date: 20171127
  Serious: No
  Sender: FDA-Public Use
  Company Number: US-ALLERGAN-1716037US

PATIENT
  Sex: Male

DRUGS (1)
  1. SAPHRIS [Suspect]
     Active Substance: ASENAPINE MALEATE
     Indication: SCHIZOAFFECTIVE DISORDER
     Dosage: 10 MG, QD
     Route: 048
     Dates: start: 2015, end: 201704

REACTIONS (6)
  - Inappropriate schedule of drug administration [Unknown]
  - Dysarthria [Recovered/Resolved]
  - Diplopia [Recovering/Resolving]
  - Drooling [Recovered/Resolved]
  - Bruxism [Recovering/Resolving]
  - Strabismus [Unknown]
